FAERS Safety Report 19575211 (Version 1)
Quarter: 2021Q3

REPORT INFORMATION
  Report Type: Spontaneous
  Country: US (occurrence: US)
  Receive Date: 20210716
  Receipt Date: 20210716
  Transmission Date: 20211014
  Serious: Yes (Other)
  Sender: FDA-Public Use
  Company Number: None

PATIENT
  Age: 67 Year
  Sex: Male
  Weight: 104.7 kg

DRUGS (14)
  1. ALLOPURINOL. [Concomitant]
     Active Substance: ALLOPURINOL
  2. SOTALOL. [Concomitant]
     Active Substance: SOTALOL
  3. AZITHROMYCIN ANHYDROUS. [Concomitant]
     Active Substance: AZITHROMYCIN ANHYDROUS
     Dates: start: 20210708, end: 20210710
  4. DEXAMETHASONE. [Concomitant]
     Active Substance: DEXAMETHASONE
     Dates: start: 20210708, end: 20210716
  5. LEVETIRACETAM. [Concomitant]
     Active Substance: LEVETIRACETAM
  6. SIMVASTATIN. [Concomitant]
     Active Substance: SIMVASTATIN
  7. CEFTAZIDIME. [Concomitant]
     Active Substance: CEFTAZIDIME
     Dates: start: 20210708, end: 20210716
  8. REMDESIVIR. [Concomitant]
     Active Substance: REMDESIVIR
     Dates: start: 20210708, end: 20210712
  9. BARICITINIB. [Suspect]
     Active Substance: BARICITINIB
     Indication: COVID-19
     Route: 048
     Dates: start: 20210708, end: 20210715
  10. AMLODIPINE [Concomitant]
     Active Substance: AMLODIPINE BESYLATE
  11. DOXAZOSIN [Concomitant]
     Active Substance: DOXAZOSIN MESYLATE
  12. IRBESARTAN. [Concomitant]
     Active Substance: IRBESARTAN
  13. APIXABAN [Concomitant]
     Active Substance: APIXABAN
     Dates: start: 20210708
  14. VANCOMYCIN [Concomitant]
     Active Substance: VANCOMYCIN
     Dates: start: 20210708, end: 20210716

REACTIONS (1)
  - Lymphocyte count decreased [None]

NARRATIVE: CASE EVENT DATE: 20210716
